FAERS Safety Report 4727375-8 (Version None)
Quarter: 2005Q3

REPORT INFORMATION
  Report Type: 
  Country: None (occurrence: None)
  Receive Date: 20050726
  Receipt Date: 20050506
  Transmission Date: 20060218
  Serious: Yes (Other)
  Sender: FDA-Public Use
  Company Number: 2005-0008209

PATIENT
  Age: 20 Year
  Sex: Female
  Weight: 54.5 kg

DRUGS (14)
  1. EMTRICITABINE (EMTRICITABINE) [Suspect]
     Indication: HIV INFECTION
     Dosage: 200 MG, 1 IN 1 D
     Dates: start: 20020710, end: 20040805
  2. EMTRICITABINE (EMTRICITABINE) [Suspect]
     Indication: HIV INFECTION
     Dosage: 200 MG, 1 IN 1 D
     Dates: start: 20040812, end: 20040816
  3. DIDANOSINE [Concomitant]
  4. EFAVIRENZ [Concomitant]
  5. SEPTRA [Concomitant]
  6. ALUMINUM HYDROXIDE AND MAGNESIUM TRISILICATE [Concomitant]
  7. CLARITIN [Concomitant]
  8. ERYTHROMYCIN [Concomitant]
  9. MOTRIN [Concomitant]
  10. BENADRYL [Concomitant]
  11. COLACE (DOCUSATE SODIUM) [Concomitant]
  12. DULCOLAX [Concomitant]
  13. MILK OF MAGNESIA TAB [Concomitant]
  14. ELAVIL [Concomitant]

REACTIONS (8)
  - ABDOMINAL PAIN UPPER [None]
  - ABORTION SPONTANEOUS [None]
  - BLOOD HUMAN CHORIONIC GONADOTROPIN POSITIVE [None]
  - COMPLICATIONS OF MATERNAL EXPOSURE TO THERAPEUTIC DRUGS [None]
  - DIARRHOEA [None]
  - DRUG DOSE OMISSION [None]
  - MATERNAL DRUGS AFFECTING FOETUS [None]
  - VAGINAL HAEMORRHAGE [None]
